FAERS Safety Report 14713958 (Version 1)
Quarter: 2018Q2

REPORT INFORMATION
  Report Type: Spontaneous
  Country: IN (occurrence: IN)
  Receive Date: 20180404
  Receipt Date: 20180404
  Transmission Date: 20180711
  Serious: Yes (Other)
  Sender: FDA-Public Use
  Company Number: IN-MYLANLABS-2018M1021197

PATIENT
  Age: 24 Year
  Sex: Male

DRUGS (1)
  1. TRIAMCINOLONE [Suspect]
     Active Substance: TRIAMCINOLONE
     Indication: URTICARIA
     Dosage: REACTION DEVELOPED SHORTLY AFTER RECEIVING AN IM INJECTION OF TRIAMCINOLONE
     Route: 030

REACTIONS (1)
  - Embolia cutis medicamentosa [Unknown]
